FAERS Safety Report 4308575-8 (Version None)
Quarter: 2004Q1

REPORT INFORMATION
  Report Type: 
  Country: None (occurrence: None)
  Receive Date: 20040301
  Receipt Date: 20031023
  Transmission Date: 20041129
  Serious: Yes (Disabling, Other)
  Sender: FDA-Public Use
  Company Number: WAES 0310USA02791

PATIENT
  Age: 16 Year
  Sex: Male
  Weight: 127 kg

DRUGS (10)
  1. [THERAPY UNSPECIFIED] [Concomitant]
  2. MOTRIN [Concomitant]
     Indication: PYREXIA
     Route: 048
     Dates: start: 20031021, end: 20031021
  3. MOTRIN [Concomitant]
     Route: 048
  4. MOTRIN [Concomitant]
     Indication: PAIN
     Route: 048
     Dates: start: 20031021, end: 20031021
  5. MOTRIN [Concomitant]
     Route: 048
  6. TORADOL [Concomitant]
     Indication: HEADACHE
     Dates: start: 20031016, end: 20031016
  7. TORADOL [Concomitant]
     Dates: start: 20031016, end: 20031016
  8. MAXALT [Suspect]
     Indication: MIGRAINE
     Route: 048
     Dates: start: 20031021, end: 20031021
  9. MAXALT [Suspect]
     Route: 048
     Dates: start: 20031022, end: 20031022
  10. ZOMIG [Concomitant]
     Indication: HEADACHE
     Route: 048
     Dates: start: 20031016, end: 20031016

REACTIONS (8)
  - BLINDNESS UNILATERAL [None]
  - BLOOD PRESSURE INCREASED [None]
  - HEADACHE [None]
  - NAUSEA [None]
  - PHONOPHOBIA [None]
  - PHOTOPHOBIA [None]
  - RETINAL HAEMORRHAGE [None]
  - SINUS PAIN [None]
